FAERS Safety Report 7644888-X (Version None)
Quarter: 2011Q3

REPORT INFORMATION
  Report Type: 
  Country: None (occurrence: None)
  Receive Date: 20110729
  Receipt Date: 20110725
  Transmission Date: 20111222
  Serious: Yes (Death)
  Sender: FDA-Public Use
  Company Number: US-SANOFI-AVENTIS-2011SA047948

PATIENT
  Age: 44 Year
  Sex: Male

DRUGS (2)
  1. MULTAQ [Suspect]
     Route: 048
     Dates: start: 20110101, end: 20110701
  2. DABIGATRAN [Suspect]
     Route: 065
     Dates: start: 20110101, end: 20110701

REACTIONS (7)
  - BLOOD UREA INCREASED [None]
  - BLOOD CREATININE INCREASED [None]
  - CARDIAC ARREST [None]
  - CARDIAC TAMPONADE [None]
  - HYPOXIC-ISCHAEMIC ENCEPHALOPATHY [None]
  - PERICARDIAL EFFUSION [None]
  - RENAL FAILURE ACUTE [None]
